FAERS Safety Report 4718676-8 (Version None)
Quarter: 2005Q3

REPORT INFORMATION
  Report Type: 
  Country: None (occurrence: None)
  Receive Date: 20050720
  Receipt Date: 20050518
  Transmission Date: 20060218
  Serious: Yes (Other)
  Sender: FDA-Public Use
  Company Number: PHBS2005CA07089

PATIENT
  Sex: Female

DRUGS (2)
  1. MIACALCIN [Suspect]
     Dosage: 200 IU, QD
     Route: 045
     Dates: start: 20050521
  2. ANTI-H2 [Concomitant]
     Dosage: UNK, QD

REACTIONS (1)
  - GASTROOESOPHAGEAL REFLUX DISEASE [None]
